FAERS Safety Report 5025380-8 (Version None)
Quarter: 2006Q2

REPORT INFORMATION
  Report Type: 
  Country: None (occurrence: None)
  Receive Date: 20060426
  Receipt Date: 20060111
  Transmission Date: 20061013
  Serious: Yes (Other)
  Sender: FDA-Public Use
  Company Number: 2006006509

PATIENT
  Age: 60 Year
  Sex: Female
  Weight: 86.637 kg

DRUGS (11)
  1. LYRICA [Suspect]
     Indication: DIABETIC NEUROPATHY
     Dosage: 150 MG (75 MG, 2 IN 1 D)
     Dates: start: 20051101
  2. PREMARIN [Concomitant]
  3. LIPITOR [Concomitant]
  4. METFORMIN [Concomitant]
  5. AMARYL [Concomitant]
  6. AMBIEN [Concomitant]
  7. CALTRATE (CALCIUM CARBONATE) [Concomitant]
  8. METAMUCIL ^PROCER + GAMBLE^ (GLUCOSE MONOHYDRATE, ISPHAGULA HUSK) [Concomitant]
  9. ONE-A-DAY (ASCORBIC ACID, CYANOCOBALAMIN, ERGOCALCIFEROL, NICOTINAMIDE [Concomitant]
  10. TYLENOL W/ CODEINE [Concomitant]
  11. FLEXERIL [Concomitant]

REACTIONS (3)
  - IMPAIRED WORK ABILITY [None]
  - SOMNOLENCE [None]
  - WEIGHT INCREASED [None]
